FAERS Safety Report 10220778 (Version 2)
Quarter: 2014Q2

REPORT INFORMATION
  Report Type: Spontaneous
  Country: US (occurrence: US)
  Receive Date: 20140606
  Receipt Date: 20140630
  Transmission Date: 20141212
  Serious: No
  Sender: FDA-Public Use
  Company Number: US-PFIZER INC-2014156038

PATIENT
  Sex: Female

DRUGS (5)
  1. LYRICA [Suspect]
     Indication: PAIN IN EXTREMITY
     Dosage: 75 MG, 2X/DAY
     Route: 048
     Dates: start: 20140613
  2. LISINOPRIL [Concomitant]
     Dosage: 25 MG, 2X/DAY
     Route: 048
  3. METOPROLOL [Concomitant]
     Dosage: 50 MG, 2X/DAY
  4. XANAX [Concomitant]
     Dosage: 2 MG, AS NEEDED
  5. AMBIEN [Concomitant]
     Dosage: 10 MG, AS NEEDED

REACTIONS (3)
  - Pain [Not Recovered/Not Resolved]
  - Furuncle [Unknown]
  - Skin lesion [Unknown]
